FAERS Safety Report 4830719-X (Version None)
Quarter: 2005Q4

REPORT INFORMATION
  Report Type: 
  Country: None (occurrence: None)
  Receive Date: 20051114
  Receipt Date: 20051107
  Transmission Date: 20060501
  Serious: Yes (Life-Threatening)
  Sender: FDA-Public Use
  Company Number: 2005-134372-NL

PATIENT
  Age: 21 Year
  Sex: Female

DRUGS (2)
  1. DESOGESTREL AND ETHINYL ESTRADIOL [Suspect]
     Dosage: DF , ORAL
     Route: 048
     Dates: start: 20050101
  2. KAKKON-TO [Concomitant]

REACTIONS (7)
  - ALANINE AMINOTRANSFERASE INCREASED [None]
  - ASPARTATE AMINOTRANSFERASE INCREASED [None]
  - JAUNDICE [None]
  - LIVER DISORDER [None]
  - LOSS OF CONSCIOUSNESS [None]
  - LYMPHOEDEMA [None]
  - PYREXIA [None]
